FAERS Safety Report 9723603 (Version 1)
Quarter: 2013Q4

REPORT INFORMATION
  Report Type: Report from Study
  Country: BR (occurrence: BR)
  Receive Date: 20131202
  Receipt Date: 20131202
  Transmission Date: 20140711
  Serious: Yes (Other)
  Sender: FDA-Public Use
  Company Number: PHHY2013BR139773

PATIENT
  Sex: Male
  Weight: 87 kg

DRUGS (4)
  1. FORASEQ [Suspect]
     Indication: ASTHMA
     Dosage: UNK UKN, UNK
  2. METFORMIN [Concomitant]
     Indication: DIABETES MELLITUS
     Dosage: UNK UKN, UNK
  3. DIOVAN HCT [Concomitant]
     Dosage: 0.5 DF, QD
     Route: 048
  4. DIOVAN HCT [Concomitant]
     Dosage: 1 DF, BID
     Route: 048

REACTIONS (3)
  - General physical health deterioration [Recovering/Resolving]
  - Nervousness [Recovering/Resolving]
  - Hypertension [Recovering/Resolving]
